FAERS Safety Report 7399131-6 (Version None)
Quarter: 2011Q1

REPORT INFORMATION
  Report Type: 
  Country: None (occurrence: None)
  Receive Date: 20110328
  Receipt Date: 20110311
  Transmission Date: 20110831
  Serious: Yes (Life-Threatening, Hospitalization)
  Sender: FDA-Public Use
  Company Number: 027232

PATIENT
  Sex: Male
  Weight: 106 kg

DRUGS (2)
  1. CIMZIA [Suspect]
     Indication: RHEUMATOID ARTHRITIS
     Dosage: REALISTIC TRIAL, 200 MG 1X/2 WEEKS SUBCUTANEOUS
     Route: 058
     Dates: start: 20090601
  2. CIMZIA [Suspect]
     Indication: RHEUMATOID ARTHRITIS
     Dosage: REALISTIC TRIAL, 200 MG 1X/2 WEEKS SUBCUTANEOUS
     Route: 058
     Dates: start: 20100108, end: 20101101

REACTIONS (10)
  - VENOUS INSUFFICIENCY [None]
  - OEDEMA PERIPHERAL [None]
  - SPEECH DISORDER [None]
  - CELLULITIS [None]
  - BACK PAIN [None]
  - LYMPHOMA [None]
  - CENTRAL NERVOUS SYSTEM LESION [None]
  - MALAISE [None]
  - LACERATION [None]
  - SKIN LESION [None]
